FAERS Safety Report 9515447 (Version 2)
Quarter: 2013Q4

REPORT INFORMATION
  Report Type: Report from Study
  Country: JP (occurrence: JP)
  Receive Date: 20130911
  Receipt Date: 20131008
  Transmission Date: 20140711
  Serious: Yes (Other)
  Sender: FDA-Public Use
  Company Number: PHHY2013JP099610

PATIENT
  Age: 69 Year
  Sex: Male

DRUGS (4)
  1. LEPONEX / CLOZARIL [Suspect]
     Indication: SCHIZOPHRENIA
     Dosage: 12.5 MG, DAILY
     Route: 048
     Dates: start: 20130724
  2. LEPONEX / CLOZARIL [Suspect]
     Dosage: 25 MG, DAILY
     Route: 048
     Dates: end: 20130813
  3. LEPONEX / CLOZARIL [Suspect]
     Dosage: 12.5 MG, DAILY
     Route: 048
     Dates: start: 20130814, end: 20130905
  4. LEPONEX / CLOZARIL [Suspect]
     Dosage: 12.5 MG, DAILY
     Route: 048
     Dates: start: 20130907

REACTIONS (3)
  - Blister [Recovering/Resolving]
  - Pyrexia [Unknown]
  - Somnolence [Recovering/Resolving]
